FAERS Safety Report 8087712-6 (Version None)
Quarter: 2012Q1

REPORT INFORMATION
  Report Type: 
  Country: None (occurrence: None)
  Receive Date: 20120128
  Receipt Date: 20110421
  Transmission Date: 20120608
  Serious: No
  Sender: FDA-Public Use
  Company Number: US-ABBOTT-11P-163-0721123-00

PATIENT
  Sex: Male

DRUGS (2)
  1. METOPROLOL TARTRATE [Concomitant]
     Indication: HYPERTENSION
  2. HUMIRA [Suspect]
     Indication: RHEUMATOID ARTHRITIS
     Dates: start: 20101001

REACTIONS (1)
  - BLOOD PRESSURE INCREASED [None]
